FAERS Safety Report 12172651 (Version 1)
Quarter: 2016Q1

REPORT INFORMATION
  Report Type: Spontaneous
  Country: AU (occurrence: AU)
  Receive Date: 20160311
  Receipt Date: 20160311
  Transmission Date: 20160526
  Serious: Yes (Hospitalization)
  Sender: FDA-Public Use
  Company Number: AU-MYLANLABS-2016M1010321

PATIENT

DRUGS (17)
  1. PROPOFOL. [Concomitant]
     Active Substance: PROPOFOL
     Indication: GENERAL ANAESTHESIA
     Dosage: 125MG
     Route: 065
  2. ROCURONIUM BROMIDE. [Concomitant]
     Active Substance: ROCURONIUM BROMIDE
     Dosage: 20MG
     Route: 065
  3. CEFAZOLIN [Concomitant]
     Active Substance: CEFAZOLIN
     Dosage: 1G
     Route: 042
  4. ROCURONIUM BROMIDE. [Concomitant]
     Active Substance: ROCURONIUM BROMIDE
     Indication: GENERAL ANAESTHESIA
     Dosage: 50MG
     Route: 065
  5. AMITRIPTYLINE [Interacting]
     Active Substance: AMITRIPTYLINE
     Indication: DEPRESSION
     Dosage: 25MG
     Route: 065
  6. PROPOFOL. [Concomitant]
     Active Substance: PROPOFOL
     Dosage: 50MG
     Route: 065
  7. FENTANYL. [Suspect]
     Active Substance: FENTANYL
     Indication: GENERAL ANAESTHESIA
     Dosage: 75MCG
     Route: 042
  8. FENTANYL. [Suspect]
     Active Substance: FENTANYL
     Dosage: 80MCG
     Route: 042
  9. PANTOPRAZOLE [Concomitant]
     Active Substance: PANTOPRAZOLE SODIUM
     Dosage: 20MG
     Route: 065
  10. MIDAZOLAM [Concomitant]
     Active Substance: MIDAZOLAM\MIDAZOLAM HYDROCHLORIDE
     Indication: GENERAL ANAESTHESIA
     Dosage: 2MG
     Route: 065
  11. DEXAMETHASONE. [Concomitant]
     Active Substance: DEXAMETHASONE
     Dosage: 8MG
     Route: 065
  12. ONDANSETRON [Concomitant]
     Active Substance: ONDANSETRON
     Dosage: 4MG
     Route: 065
  13. FENTANYL. [Suspect]
     Active Substance: FENTANYL
     Dosage: 100MCG
     Route: 042
  14. CITALOPRAM [Interacting]
     Active Substance: CITALOPRAM HYDROBROMIDE
     Indication: DEPRESSION
     Dosage: 60MG
     Route: 065
  15. SEVOFLURANE. [Concomitant]
     Active Substance: SEVOFLURANE
     Indication: GENERAL ANAESTHESIA
     Route: 065
  16. PARECOXIB [Concomitant]
     Active Substance: PARECOXIB
     Dosage: 40MG
     Route: 065
  17. BUPIVACAINE [Concomitant]
     Active Substance: BUPIVACAINE
     Dosage: 15ML (CONC 0.5%)
     Route: 065

REACTIONS (2)
  - Serotonin syndrome [Recovered/Resolved]
  - Drug interaction [Unknown]
